FAERS Safety Report 12634828 (Version 1)
Quarter: 2016Q3

REPORT INFORMATION
  Report Type: Spontaneous
  Country: US (occurrence: US)
  Receive Date: 20160808
  Receipt Date: 20160808
  Transmission Date: 20161109
  Serious: No
  Sender: FDA-Public Use
  Company Number: US-WARNER CHILCOTT, LLC-1056010

PATIENT
  Sex: Female

DRUGS (1)
  1. ASACOL HD [Suspect]
     Active Substance: MESALAMINE
     Route: 048

REACTIONS (3)
  - Nausea [Unknown]
  - Decreased appetite [Unknown]
  - Fluid intake reduced [Unknown]
